FAERS Safety Report 4333957-8 (Version None)
Quarter: 2004Q2

REPORT INFORMATION
  Report Type: 
  Country: None (occurrence: None)
  Receive Date: 20040402
  Receipt Date: 20040325
  Transmission Date: 20050107
  Serious: No
  Sender: FDA-Public Use
  Company Number: 2004UW05829

PATIENT

DRUGS (1)
  1. CRESTOR [Suspect]

REACTIONS (1)
  - CARDIAC FAILURE CONGESTIVE [None]
